FAERS Safety Report 7629763-9 (Version None)
Quarter: 2011Q3

REPORT INFORMATION
  Report Type: 
  Country: None (occurrence: None)
  Receive Date: 20110722
  Receipt Date: 20110711
  Transmission Date: 20111222
  Serious: Yes (Other)
  Sender: FDA-Public Use
  Company Number: US-PFIZER INC-2011166631

PATIENT

DRUGS (1)
  1. NEURONTIN [Suspect]
     Indication: SPINAL COLUMN STENOSIS

REACTIONS (1)
  - OEDEMA PERIPHERAL [None]
